FAERS Safety Report 5043332-9 (Version None)
Quarter: 2006Q3

REPORT INFORMATION
  Report Type: 
  Country: None (occurrence: None)
  Receive Date: 20060703
  Receipt Date: 20060703
  Transmission Date: 20061208
  Serious: No
  Sender: FDA-Public Use
  Company Number: None

PATIENT
  Sex: Male
  Weight: 87.0906 kg

DRUGS (6)
  1. VARDENAFIL 20 MG [Suspect]
     Indication: ERECTILE DYSFUNCTION
     Dosage: 10 MG PRN PO
     Route: 048
     Dates: start: 20060227, end: 20060419
  2. ATORVASTATIN CALCIUM [Concomitant]
  3. LISINOPRIL [Concomitant]
  4. HCTZ 50/TRIAMTERENE [Concomitant]
  5. NATEGLINIDE 120 MG/D [Concomitant]
  6. PIOGLITAZONE HCL [Suspect]

REACTIONS (2)
  - FEELING ABNORMAL [None]
  - HALLUCINATION [None]
